FAERS Safety Report 7514812-9 (Version None)
Quarter: 2011Q2

REPORT INFORMATION
  Report Type: 
  Country: None (occurrence: None)
  Receive Date: 20110526
  Receipt Date: 20110526
  Transmission Date: 20111010
  Serious: Yes (Hospitalization)
  Sender: FDA-Public Use
  Company Number: None

PATIENT
  Sex: Male
  Weight: 98 kg

DRUGS (2)
  1. TAXOL [Suspect]
     Dosage: 444 MG
     Dates: end: 20110502
  2. CARBOPLATIN [Suspect]
     Dosage: 765 MG
     Dates: end: 20110502

REACTIONS (3)
  - DEHYDRATION [None]
  - PNEUMONIA [None]
  - CHEST PAIN [None]
